FAERS Safety Report 17482691 (Version 1)
Quarter: 2020Q1

REPORT INFORMATION
  Report Type: Spontaneous
  Country: AU (occurrence: AU)
  Receive Date: 20200302
  Receipt Date: 20200302
  Transmission Date: 20200409
  Serious: Yes (Hospitalization)
  Sender: FDA-Public Use
  Company Number: AU-ELI_LILLY_AND_COMPANY-AU202002009493

PATIENT
  Age: 72 Year
  Sex: Female

DRUGS (4)
  1. HUMALOG [Suspect]
     Active Substance: INSULIN LISPRO
     Indication: DIABETES MELLITUS
     Dosage: 3 U, EACH MORNING(BREAKFAST)
     Route: 058
     Dates: start: 1984
  2. HUMALOG [Suspect]
     Active Substance: INSULIN LISPRO
     Dosage: 3 U, DAILY (LUNCH)
     Route: 058
     Dates: start: 1984
  3. HUMALOG [Suspect]
     Active Substance: INSULIN LISPRO
     Dosage: 3-4 U, EACH EVENING(DINNER)
     Route: 058
     Dates: start: 1984
  4. HUMALOG [Suspect]
     Active Substance: INSULIN LISPRO
     Dosage: 5 U, DAILY (AFTER DINNER)
     Route: 058
     Dates: start: 1984

REACTIONS (4)
  - Asthma [Unknown]
  - Lower limb fracture [Recovered/Resolved]
  - Ankle fracture [Recovered/Resolved]
  - Cataract [Unknown]

NARRATIVE: CASE EVENT DATE: 20190519
